FAERS Safety Report 7773735-0 (Version None)
Quarter: 2011Q3

REPORT INFORMATION
  Report Type: 
  Country: None (occurrence: None)
  Receive Date: 20110920
  Receipt Date: 20110902
  Transmission Date: 20111222
  Serious: Yes (Death, Hospitalization)
  Sender: FDA-Public Use
  Company Number: UTC-009029

PATIENT
  Age: 34 Year
  Weight: 45.45 kg

DRUGS (2)
  1. REMODULIN [Suspect]
     Indication: COR PULMONALE CHRONIC
     Dosage: 44.64 UG/KG (0.031 UG/KG, 1 IN 1 MIN), INTRAVENOUS
     Route: 042
     Dates: start: 20100402
  2. TRACLEER [Concomitant]

REACTIONS (2)
  - SEPTIC SHOCK [None]
  - DEVICE RELATED SEPSIS [None]
